FAERS Safety Report 18305693 (Version 1)
Quarter: 2020Q3

REPORT INFORMATION
  Report Type: Spontaneous
  Country: US (occurrence: US)
  Receive Date: 20200923
  Receipt Date: 20200923
  Transmission Date: 20201103
  Serious: Yes (Death, Other)
  Sender: FDA-Public Use
  Company Number: US-PURDUE-USA-2020-0166886

PATIENT
  Age: 54 Year
  Sex: Male
  Weight: 108 kg

DRUGS (11)
  1. HYDROCODONE BITARTRATE AND ACETAMINOPHEN [Suspect]
     Active Substance: ACETAMINOPHEN\HYDROCODONE BITARTRATE
     Dosage: 7.5 MG, UNK
     Route: 048
  2. BEXTRA                             /01400702/ [Concomitant]
     Indication: PRODUCT USED FOR UNKNOWN INDICATION
     Dosage: 20 UNK, UNK
     Route: 065
  3. HYDROCODONE BITARTRATE AND ACETAMINOPHEN [Suspect]
     Active Substance: ACETAMINOPHEN\HYDROCODONE BITARTRATE
     Indication: PRODUCT USED FOR UNKNOWN INDICATION
     Dosage: 10?325 MG
     Route: 048
  4. HYDROCODONE BITARTRATE AND ACETAMINOPHEN [Suspect]
     Active Substance: ACETAMINOPHEN\HYDROCODONE BITARTRATE
     Dosage: 650 UNK, PRN
     Route: 048
  5. ALEVE [Concomitant]
     Active Substance: NAPROXEN SODIUM
     Indication: PRODUCT USED FOR UNKNOWN INDICATION
     Dosage: 2 UNK, UNK
     Route: 065
  6. HYDROCODONE BITARTRATE (SIMILAR TO NDA 206627) [Suspect]
     Active Substance: HYDROCODONE BITARTRATE
     Dosage: 10/325 MG
     Route: 048
  7. BEXTRA                             /01400702/ [Concomitant]
     Dosage: 10 MG, 1?2 TIMES PER DAY
     Route: 065
  8. HYDROCODONE BITARTRATE (SIMILAR TO NDA 206627) [Suspect]
     Active Substance: HYDROCODONE BITARTRATE
     Indication: PRODUCT USED FOR UNKNOWN INDICATION
     Dosage: 2.5/500 MG
     Route: 048
  9. HYDROCODONE BITARTRATE AND ACETAMINOPHEN [Suspect]
     Active Substance: ACETAMINOPHEN\HYDROCODONE BITARTRATE
     Dosage: 5/500 MG
     Route: 048
  10. HYZAAR [Concomitant]
     Active Substance: HYDROCHLOROTHIAZIDE\LOSARTAN POTASSIUM
     Indication: PRODUCT USED FOR UNKNOWN INDICATION
     Dosage: 50/12.5 MG
     Route: 065
  11. TUSSIONEX                          /00140501/ [Concomitant]
     Active Substance: HYDROCODONE\PHENYLTOLOXAMINE
     Indication: PRODUCT USED FOR UNKNOWN INDICATION
     Dosage: UNK
     Route: 065

REACTIONS (28)
  - Mood swings [Unknown]
  - Poor peripheral circulation [Unknown]
  - Back pain [Unknown]
  - Hypersensitivity [Unknown]
  - Depression [Unknown]
  - Blood cholesterol [Unknown]
  - Agitation [Unknown]
  - Drug dependence [Unknown]
  - Dysuria [Unknown]
  - Quality of life decreased [Unknown]
  - Confusional state [Unknown]
  - Death [Fatal]
  - Lethargy [Unknown]
  - Bone pain [Unknown]
  - Irritability [Unknown]
  - General physical health deterioration [Unknown]
  - Somnolence [Unknown]
  - Mental disorder [Unknown]
  - Muscular weakness [Unknown]
  - Insomnia [Unknown]
  - Intervertebral disc disorder [Unknown]
  - Hypoaesthesia [Unknown]
  - Muscle spasms [Unknown]
  - Restlessness [Unknown]
  - Dry mouth [Unknown]
  - Spinal stenosis [Unknown]
  - Constipation [Unknown]
  - Blood pressure measurement [Unknown]

NARRATIVE: CASE EVENT DATE: 201703
